FAERS Safety Report 5173808-5 (Version None)
Quarter: 2006Q4

REPORT INFORMATION
  Report Type: 
  Country: None (occurrence: None)
  Receive Date: 20061214
  Receipt Date: 20060921
  Transmission Date: 20070319
  Serious: Yes (Hospitalization)
  Sender: FDA-Public Use
  Company Number: JP-GLAXOSMITHKLINE-B0439296A

PATIENT
  Age: 29 Year
  Sex: Male

DRUGS (8)
  1. EPIVIR [Suspect]
     Indication: HIV INFECTION
     Dosage: 300MG PER DAY
     Route: 048
     Dates: start: 19960528
  2. NORVIR [Suspect]
     Indication: HIV INFECTION
     Dosage: 100MG PER DAY
     Route: 048
     Dates: start: 20040615, end: 20050413
  3. REYATAZ [Suspect]
     Indication: HIV INFECTION
     Dosage: 300MG PER DAY
     Route: 048
     Dates: start: 20040615, end: 20050413
  4. VIREAD [Suspect]
     Indication: HIV INFECTION
     Dosage: 300MG PER DAY
     Route: 048
     Dates: start: 20040615, end: 20050413
  5. ZERIT [Concomitant]
     Indication: HIV INFECTION
     Route: 048
     Dates: start: 19970825
  6. VIRACEPT [Concomitant]
     Indication: HIV INFECTION
     Route: 048
     Dates: start: 19970825
  7. LIPANTIL [Concomitant]
     Indication: HYPERTRIGLYCERIDAEMIA
     Dosage: 100MG PER DAY
     Route: 048
     Dates: start: 20040401, end: 20050413
  8. RECOMBINATE [Concomitant]
     Indication: FACTOR VIII DEFICIENCY
     Route: 042
     Dates: start: 20040401

REACTIONS (3)
  - LYMPHADENOPATHY [None]
  - LYMPHOMA [None]
  - NEOPLASM [None]
